FAERS Safety Report 16173691 (Version 1)
Quarter: 2019Q2

REPORT INFORMATION
  Report Type: Spontaneous
  Country: US (occurrence: US)
  Receive Date: 20190408
  Receipt Date: 20190408
  Transmission Date: 20190711
  Serious: No
  Sender: FDA-Public Use
  Company Number: None

PATIENT
  Age: 47 Year
  Sex: Female
  Weight: 117 kg

DRUGS (8)
  1. LAMICTAL [Concomitant]
     Active Substance: LAMOTRIGINE
  2. SRONYX [Concomitant]
     Active Substance: ETHINYL ESTRADIOL\LEVONORGESTREL
  3. IBUPROFEN. [Concomitant]
     Active Substance: IBUPROFEN
  4. ABILIFY [Concomitant]
     Active Substance: ARIPIPRAZOLE
  5. GEODON [Suspect]
     Active Substance: ZIPRASIDONE HYDROCHLORIDE\ZIPRASIDONE MESYLATE
     Indication: AUTISM SPECTRUM DISORDER
     Dosage: ?          QUANTITY:1 CAPSULE(S);?
     Route: 048
  6. TYLENOL [Concomitant]
     Active Substance: ACETAMINOPHEN
  7. TRAZODONE [Concomitant]
     Active Substance: TRAZODONE HYDROCHLORIDE
  8. ATIVAN [Concomitant]
     Active Substance: LORAZEPAM

REACTIONS (4)
  - Hallucination [None]
  - Screaming [None]
  - Seizure [None]
  - Delusion [None]

NARRATIVE: CASE EVENT DATE: 20171001
